FAERS Safety Report 11334371 (Version 1)
Quarter: 2015Q3

REPORT INFORMATION
  Report Type: Spontaneous
  Country: US (occurrence: US)
  Receive Date: 20150804
  Receipt Date: 20150804
  Transmission Date: 20151125
  Serious: No
  Sender: FDA-Public Use
  Company Number: US-ASTRAZENECA-2015SE72503

PATIENT
  Sex: Female
  Weight: 79.8 kg

DRUGS (3)
  1. BYDUREON [Suspect]
     Active Substance: EXENATIDE
     Indication: DIABETES MELLITUS
     Route: 065
  2. GLYBURIDE. [Concomitant]
     Active Substance: GLYBURIDE
  3. METFORMIN [Concomitant]
     Active Substance: METFORMIN HYDROCHLORIDE
     Dosage: 500MG CUT IN HALF TWICE A DAY

REACTIONS (3)
  - Injection site pain [Unknown]
  - Injection site extravasation [Unknown]
  - Underdose [Unknown]
